FAERS Safety Report 12327444 (Version 1)
Quarter: 2016Q2

REPORT INFORMATION
  Report Type: Spontaneous
  Country: US (occurrence: US)
  Receive Date: 20160503
  Receipt Date: 20160503
  Transmission Date: 20160815
  Serious: Yes (Hospitalization, Other)
  Sender: FDA-Public Use
  Company Number: US-GLAXOSMITHKLINE-US2016GSK059328

PATIENT
  Sex: Male

DRUGS (1)
  1. LAMICTAL [Suspect]
     Active Substance: LAMOTRIGINE
     Indication: PRODUCT USED FOR UNKNOWN INDICATION

REACTIONS (14)
  - Pulmonary embolism [Unknown]
  - Pain in extremity [Unknown]
  - Muscle spasticity [Unknown]
  - Urinary retention [Unknown]
  - Chest pain [Unknown]
  - Fall [Unknown]
  - Abdominal pain [Unknown]
  - Asthenia [Unknown]
  - Urinary tract infection [Unknown]
  - Muscle spasms [Unknown]
  - Catheterisation cardiac [Unknown]
  - Intrathecal pump insertion [Unknown]
  - Lethargy [Unknown]
  - Musculoskeletal pain [Unknown]

NARRATIVE: CASE EVENT DATE: 2011
